FAERS Safety Report 9988819 (Version 1)
Quarter: 2014Q1

REPORT INFORMATION
  Report Type: Spontaneous
  Country: GB (occurrence: GB)
  Receive Date: 20140310
  Receipt Date: 20140310
  Transmission Date: 20141002
  Serious: No
  Sender: FDA-Public Use
  Company Number: GB-JNJFOC-20140216239

PATIENT
  Sex: Female

DRUGS (1)
  1. DUROGESIC DTRANS [Suspect]
     Indication: PAIN IN JAW
     Route: 062

REACTIONS (3)
  - Drug prescribing error [Unknown]
  - Wrong technique in drug usage process [Unknown]
  - Inadequate analgesia [Unknown]
